FAERS Safety Report 14968208 (Version 1)
Quarter: 2018Q2

REPORT INFORMATION
  Report Type: Spontaneous
  Country: CA (occurrence: CA)
  Receive Date: 20180604
  Receipt Date: 20180604
  Transmission Date: 20180711
  Serious: Yes (Hospitalization)
  Sender: FDA-Public Use
  Company Number: CA-ROCHE-2131058

PATIENT
  Age: 60 Year
  Sex: Female

DRUGS (4)
  1. APO-PREDNISONE [Suspect]
     Active Substance: PREDNISONE
     Indication: PRODUCT USED FOR UNKNOWN INDICATION
     Route: 065
  2. AMITRIPTYLINE [Concomitant]
     Active Substance: AMITRIPTYLINE
     Indication: PRODUCT USED FOR UNKNOWN INDICATION
     Route: 065
  3. ACTEMRA [Suspect]
     Active Substance: TOCILIZUMAB
     Indication: RHEUMATOID ARTHRITIS
     Route: 065
  4. RITUXAN [Suspect]
     Active Substance: RITUXIMAB
     Indication: RHEUMATOID ARTHRITIS
     Route: 042

REACTIONS (9)
  - Drug hypersensitivity [Unknown]
  - Blood glucose abnormal [Unknown]
  - Clostridium difficile infection [Unknown]
  - Back disorder [Unknown]
  - Dehydration [Unknown]
  - Drug ineffective [Unknown]
  - Thrombosis [Unknown]
  - Loss of consciousness [Unknown]
  - Diabetes mellitus [Unknown]
